FAERS Safety Report 5513715-9 (Version None)
Quarter: 2007Q4

REPORT INFORMATION
  Report Type: 
  Country: None (occurrence: None)
  Receive Date: 20071109
  Receipt Date: 20071109
  Transmission Date: 20080405
  Serious: Yes (Hospitalization)
  Sender: FDA-Public Use
  Company Number: None

PATIENT
  Sex: Male
  Weight: 54.7 kg

DRUGS (1)
  1. IRESSA [Suspect]
     Indication: METASTATIC NEOPLASM
     Dosage: 750MG PO QD
     Route: 048
     Dates: start: 20071009, end: 20071106

REACTIONS (5)
  - ATRIAL FIBRILLATION [None]
  - HEART RATE IRREGULAR [None]
  - HYPOXIA [None]
  - MALIGNANT NEOPLASM PROGRESSION [None]
  - METASTASES TO LUNG [None]
